FAERS Safety Report 8388777-4 (Version None)
Quarter: 2012Q2

REPORT INFORMATION
  Report Type: 
  Country: None (occurrence: None)
  Receive Date: 20120528
  Receipt Date: 20120515
  Transmission Date: 20120825
  Serious: Yes (Life-Threatening, Other)
  Sender: FDA-Public Use
  Company Number: FR-BRISTOL-MYERS SQUIBB COMPANY-16630576

PATIENT
  Age: 1 Day
  Sex: Male

DRUGS (3)
  1. ETOPOSIDE [Suspect]
     Indication: NEUROBLASTOMA
  2. NEUPOGEN [Suspect]
     Indication: NEUROBLASTOMA
  3. CISPLATIN [Suspect]
     Indication: NEUROBLASTOMA

REACTIONS (2)
  - FOETAL DISTRESS SYNDROME [None]
  - PREMATURE DELIVERY [None]
